FAERS Safety Report 10550387 (Version 1)
Quarter: 2014Q4

REPORT INFORMATION
  Report Type: Spontaneous
  Country: US (occurrence: US)
  Receive Date: 20141029
  Receipt Date: 20141029
  Transmission Date: 20150529
  Serious: No
  Sender: FDA-Public Use
  Company Number: US-TEVA-437043USA

PATIENT
  Sex: Male

DRUGS (2)
  1. PROVIGIL [Suspect]
     Active Substance: MODAFINIL
     Indication: POOR QUALITY SLEEP
  2. PROVIGIL [Suspect]
     Active Substance: MODAFINIL
     Indication: DISTURBANCE IN ATTENTION

REACTIONS (5)
  - Drug effect decreased [Unknown]
  - Feeling hot [Unknown]
  - Dysgeusia [Unknown]
  - Hyperhidrosis [Unknown]
  - Off label use [Unknown]

NARRATIVE: CASE EVENT DATE: 2010
